FAERS Safety Report 12162009 (Version 1)
Quarter: 2016Q1

REPORT INFORMATION
  Report Type: Spontaneous
  Country: US (occurrence: None)
  Receive Date: 20160307
  Receipt Date: 20160307
  Transmission Date: 20160526
  Serious: Yes (Other)
  Sender: FDA-Public Use
  Company Number: None

PATIENT
  Age: 41 Year
  Sex: Female
  Weight: 67.13 kg

DRUGS (5)
  1. ADDERALL [Concomitant]
     Active Substance: AMPHETAMINE ASPARTATE\AMPHETAMINE SULFATE\DEXTROAMPHETAMINE SACCHARATE\DEXTROAMPHETAMINE SULFATE
  2. VALTREX [Suspect]
     Active Substance: VALACYCLOVIR HYDROCHLORIDE
     Indication: HERPES SIMPLEX
     Route: 048
     Dates: start: 20160301, end: 20160303
  3. BIOTIN [Concomitant]
     Active Substance: BIOTIN
  4. IORN [Concomitant]
  5. MOTRIN [Concomitant]
     Active Substance: IBUPROFEN

REACTIONS (2)
  - Pain of skin [None]
  - Alopecia [None]

NARRATIVE: CASE EVENT DATE: 20160303
